FAERS Safety Report 25038634 (Version 2)
Quarter: 2025Q1

REPORT INFORMATION
  Report Type: Report from Study
  Country: US (occurrence: US)
  Receive Date: 20250304
  Receipt Date: 20250327
  Transmission Date: 20250408
  Serious: Yes (Hospitalization)
  Sender: ABBVIE
  Company Number: US-ABBVIE-6151550

PATIENT
  Age: 57 Year
  Sex: Female

DRUGS (2)
  1. RINVOQ [Suspect]
     Active Substance: UPADACITINIB
     Indication: Ankylosing spondylitis
     Route: 048
     Dates: start: 20241223, end: 2025
  2. RINVOQ [Suspect]
     Active Substance: UPADACITINIB
     Indication: Ankylosing spondylitis
     Dosage: STRENGTH; 15 MG?FIRST ADMIN DATE: 2025
     Route: 048

REACTIONS (4)
  - Norovirus infection [Recovering/Resolving]
  - Nausea [Recovering/Resolving]
  - Pain [Unknown]
  - Iritis [Unknown]

NARRATIVE: CASE EVENT DATE: 20250101
